FAERS Safety Report 7546137-X (Version None)
Quarter: 2011Q2

REPORT INFORMATION
  Report Type: 
  Country: None (occurrence: None)
  Receive Date: 20110607
  Receipt Date: 20110523
  Transmission Date: 20111010
  Serious: Yes (Other)
  Sender: FDA-Public Use
  Company Number: 1000020864

PATIENT
  Age: 58 Year
  Sex: Female
  Weight: 92.7 kg

DRUGS (13)
  1. ROFLUMILAST (ROFLUMILAST) (TABLETS) [Suspect]
     Indication: CHRONIC OBSTRUCTIVE PULMONARY DISEASE
     Dosage: 500 MCG (500 MCG,ONCE DAILY)
     Dates: start: 20110321, end: 20110323
  2. ASS (ACETYLSALICYLIC ACID) (ACETYLALICYLIC ACID) [Concomitant]
  3. RANTOZOL (PANTOZOL) (PANTOZOL) [Concomitant]
  4. CORANGIN (CORANGIN) (CORANGIN) [Concomitant]
  5. SPIRIVIA (TIOTROOIUM BRMOIDE) (TIOTROOIUM BROMIDE) [Concomitant]
  6. INSPRA (INSPRA) (INSPRA) [Concomitant]
  7. INEGY (INEGY) (INEGY) [Concomitant]
  8. ALLOPURINOL (ALLOPURINOL) (ALLOPURNOL) [Concomitant]
  9. ACC (ACETYL CYSTINE) [Concomitant]
  10. RAMIPRIL [Concomitant]
  11. FUROSEMIDE [Concomitant]
  12. NEBILET (NEBIVOLOL HYDROCHLORIDE) (NEBIVOLOL HYDROCHLORIDE) [Concomitant]
  13. SYMBICORT (BUDESONIDE/FORMOTEROL FURMARATE) (BUDESONIDE/FORMOTEROL FUM [Concomitant]

REACTIONS (5)
  - GAMMA-GLUTAMYLTRANSFERASE INCREASED [None]
  - BLOOD PRESSURE SYSTOLIC INCREASED [None]
  - CONDITION AGGRAVATED [None]
  - DYSPNOEA [None]
  - CHEST DISCOMFORT [None]
